FAERS Safety Report 5679576-2 (Version None)
Quarter: 2008Q1

REPORT INFORMATION
  Report Type: 
  Country: None (occurrence: None)
  Receive Date: 20080325
  Receipt Date: 20080313
  Transmission Date: 20080703
  Serious: Yes (Hospitalization, Other)
  Sender: FDA-Public Use
  Company Number: US-PFIZER INC-2008024579

PATIENT
  Sex: Female
  Weight: 130.9 kg

DRUGS (7)
  1. LYRICA [Suspect]
     Indication: FIBROMYALGIA
     Dosage: TEXT:EVERY DAY
     Route: 048
     Dates: start: 20051201, end: 20060101
  2. ALL OTHER THERAPEUTIC PRODUCTS [Concomitant]
  3. CLONAZEPAM [Concomitant]
  4. OXYCODONE HCL [Concomitant]
  5. METHOCARBAMOL [Concomitant]
  6. LORAZEPAM [Concomitant]
  7. PAXIL [Concomitant]

REACTIONS (10)
  - BLOOD CREATININE INCREASED [None]
  - CONFUSIONAL STATE [None]
  - DIALYSIS [None]
  - GAIT DISTURBANCE [None]
  - MALAISE [None]
  - NAUSEA [None]
  - RENAL DISORDER [None]
  - RENAL FAILURE [None]
  - URINARY INCONTINENCE [None]
  - VOMITING [None]
